FAERS Safety Report 10721265 (Version 9)
Quarter: 2016Q3

REPORT INFORMATION
  Report Type: Spontaneous
  Country: US (occurrence: US)
  Receive Date: 20150119
  Receipt Date: 20160921
  Transmission Date: 20161109
  Serious: Yes (Hospitalization, Congenital Anomaly, Other)
  Sender: FDA-Public Use
  Company Number: US-APOTEX-2015AP005219

PATIENT
  Age: 0 Year
  Sex: Female
  Weight: 3.04 kg

DRUGS (5)
  1. PAXIL [Suspect]
     Active Substance: PAROXETINE HYDROCHLORIDE
     Dosage: UNK
     Route: 065
  2. PAXIL [Suspect]
     Active Substance: PAROXETINE HYDROCHLORIDE
     Indication: DEPRESSION
     Dosage: 37.5 MG, DAILY
     Route: 064
     Dates: start: 2003, end: 20031004
  3. PAXIL CR [Suspect]
     Active Substance: PAROXETINE HYDROCHLORIDE
     Indication: DEPRESSION
     Dosage: 37.5 MG, QD
     Route: 064
     Dates: start: 20030311, end: 20030904
  4. PAXIL CR [Suspect]
     Active Substance: PAROXETINE HYDROCHLORIDE
     Dosage: 25 MG, QD
     Route: 064
     Dates: start: 20020618, end: 20020804
  5. PAXIL [Suspect]
     Active Substance: PAROXETINE HYDROCHLORIDE
     Dosage: 25 MG, DAILY
     Route: 064

REACTIONS (11)
  - Heart disease congenital [Unknown]
  - Cardiomegaly [Unknown]
  - Cardiac murmur [Unknown]
  - Foetal exposure during pregnancy [Unknown]
  - Headache [Unknown]
  - Ventricular hypertrophy [Unknown]
  - Developmental delay [Unknown]
  - Mitral valve incompetence [Unknown]
  - Pectus excavatum [Unknown]
  - Cardiac failure congestive [Unknown]
  - Ventricular septal defect [Recovering/Resolving]

NARRATIVE: CASE EVENT DATE: 2004
